FAERS Safety Report 6598856-X (Version None)
Quarter: 2010Q1

REPORT INFORMATION
  Report Type: 
  Country: None (occurrence: None)
  Receive Date: 20100224
  Receipt Date: 20100218
  Transmission Date: 20100710
  Serious: Yes (Hospitalization)
  Sender: FDA-Public Use
  Company Number: DE-WYE-G05588910

PATIENT
  Age: 58 Year
  Sex: Female

DRUGS (9)
  1. TREVILOR RETARD [Suspect]
     Indication: DEPRESSION
     Route: 048
     Dates: start: 20090723, end: 20090810
  2. TREVILOR RETARD [Interacting]
     Route: 048
     Dates: start: 20090811, end: 20090811
  3. TREVILOR RETARD [Interacting]
     Route: 048
     Dates: start: 20090812, end: 20090817
  4. TREVILOR RETARD [Interacting]
     Route: 048
     Dates: start: 20090818, end: 20090908
  5. TREVILOR RETARD [Interacting]
     Route: 048
     Dates: start: 20090909, end: 20090914
  6. TREVILOR RETARD [Interacting]
     Route: 048
     Dates: start: 20090915, end: 20090923
  7. TREVILOR RETARD [Interacting]
     Route: 048
     Dates: start: 20090924, end: 20090925
  8. THYRONAJOD [Concomitant]
     Route: 048
  9. EXFORGE [Interacting]
     Indication: ESSENTIAL HYPERTENSION
     Dosage: 5 MG AMLODIPINE/ 160 MG VALSARTAN PER DAY FROM AN UNKNOWN DATE, DISCONTINUED ON 14-OCT-2009
     Route: 048

REACTIONS (3)
  - CARDIOVASCULAR DISORDER [None]
  - DRUG INTERACTION [None]
  - SYNCOPE [None]
